FAERS Safety Report 18032452 (Version 1)
Quarter: 2020Q3

REPORT INFORMATION
  Report Type: Spontaneous
  Country: US (occurrence: US)
  Receive Date: 20200716
  Receipt Date: 20200716
  Transmission Date: 20201103
  Serious: No
  Sender: FDA-Public Use
  Company Number: US-MYLANLABS-2020M1062510

PATIENT
  Sex: Female

DRUGS (4)
  1. LANSOPRAZOLE DELAYED?RELEASE CAPSULES USP [Suspect]
     Active Substance: LANSOPRAZOLE
     Dosage: 1 DAILY
     Route: 048
  2. LANSOPRAZOLE DELAYED?RELEASE CAPSULES USP [Suspect]
     Active Substance: LANSOPRAZOLE
     Indication: GASTROOESOPHAGEAL REFLUX DISEASE
     Dosage: 15 MILLIGRAM
  3. FLONASE                            /00908302/ [Concomitant]
     Active Substance: MOMETASONE FUROATE
     Dosage: WHEN NEEDED.
  4. LANSOPRAZOLE DELAYED?RELEASE CAPSULES USP [Suspect]
     Active Substance: LANSOPRAZOLE
     Dosage: 1 CAPSULE, QD
     Route: 048

REACTIONS (2)
  - Drug ineffective [Recovering/Resolving]
  - Feeling abnormal [Recovering/Resolving]
